FAERS Safety Report 10345013 (Version 2)
Quarter: 2014Q3

REPORT INFORMATION
  Report Type: Spontaneous
  Country: US (occurrence: US)
  Receive Date: 20140728
  Receipt Date: 20140903
  Transmission Date: 20150326
  Serious: Yes (Hospitalization)
  Sender: FDA-Public Use
  Company Number: US-ROCHE-1440634

PATIENT
  Age: 8 Year
  Sex: Male
  Weight: 28.9 kg

DRUGS (1)
  1. NUTROPIN AQ [Suspect]
     Active Substance: SOMATROPIN
     Indication: BODY HEIGHT BELOW NORMAL
     Dosage: 6 DAYS PER WEEK
     Route: 058
     Dates: start: 20090501, end: 20140707

REACTIONS (1)
  - Anaplastic astrocytoma [Not Recovered/Not Resolved]

NARRATIVE: CASE EVENT DATE: 20140707
